FAERS Safety Report 6731441-5 (Version None)
Quarter: 2010Q2

REPORT INFORMATION
  Report Type: 
  Country: None (occurrence: None)
  Receive Date: 20100518
  Receipt Date: 20100518
  Transmission Date: 20101027
  Serious: Yes (Hospitalization)
  Sender: FDA-Public Use
  Company Number: None

PATIENT
  Age: 2 Month
  Sex: Male
  Weight: 8 kg

DRUGS (1)
  1. OSELTAMIVIR PHOSPHATE [Suspect]
     Indication: INFLUENZA LIKE ILLNESS
     Dosage: OSELTAMIVIR ONCE PO  (ONE DOSE)
     Route: 048
     Dates: start: 20091020, end: 20091020

REACTIONS (3)
  - DECREASED APPETITE [None]
  - DEPRESSED LEVEL OF CONSCIOUSNESS [None]
  - OXYGEN SATURATION DECREASED [None]
